FAERS Safety Report 23200286 (Version 8)
Quarter: 2025Q1

REPORT INFORMATION
  Report Type: Spontaneous
  Country: US (occurrence: US)
  Receive Date: 20231118
  Receipt Date: 20250326
  Transmission Date: 20250409
  Serious: No
  Sender: SANOFI AVENTIS
  Company Number: US-SA-SAC20231111000527

PATIENT
  Age: 40 Year
  Sex: Male

DRUGS (1)
  1. DUPIXENT [Suspect]
     Active Substance: DUPILUMAB
     Indication: Eosinophilic oesophagitis
     Dosage: 300 MG, QW
     Route: 058
     Dates: start: 20231028, end: 202408

REACTIONS (13)
  - Dysphagia [Unknown]
  - Fatigue [Unknown]
  - Sinus congestion [Unknown]
  - Condition aggravated [Unknown]
  - Sinusitis [Unknown]
  - Pruritus [Unknown]
  - Arthralgia [Unknown]
  - Injection site swelling [Unknown]
  - Injection site pain [Unknown]
  - Condition aggravated [Unknown]
  - Accidental exposure to product [Unknown]
  - Exposure via skin contact [Unknown]
  - Drug ineffective [Unknown]

NARRATIVE: CASE EVENT DATE: 20230101
